FAERS Safety Report 26204896 (Version 1)
Quarter: 2025Q4

REPORT INFORMATION
  Report Type: Report from Study
  Country: CA (occurrence: CA)
  Receive Date: 20251227
  Receipt Date: 20251227
  Transmission Date: 20260117
  Serious: Yes (Other)
  Sender: CELLTRION
  Company Number: CA-CELLTRION INC.-2025CA044870

PATIENT

DRUGS (1)
  1. USTEKINUMAB [Suspect]
     Active Substance: USTEKINUMAB
     Indication: Psoriasis
     Dosage: 45MG Q 8 WEEKS
     Route: 058

REACTIONS (3)
  - Cough [Unknown]
  - Myalgia [Unknown]
  - Intentional product use issue [Unknown]

NARRATIVE: CASE EVENT DATE: 20251218
